FAERS Safety Report 7218535-5 (Version None)
Quarter: 2011Q1

REPORT INFORMATION
  Report Type: 
  Country: None (occurrence: None)
  Receive Date: 20110110
  Receipt Date: 20110104
  Transmission Date: 20110831
  Serious: Yes (Death, Hospitalization)
  Sender: FDA-Public Use
  Company Number: CN-PFIZER INC-2010176159

PATIENT
  Age: 18 Month
  Sex: Female

DRUGS (4)
  1. SULPERAZON [Suspect]
     Indication: INFECTION
     Dosage: 0.5G, Q12H
     Route: 041
     Dates: start: 20100706, end: 20100707
  2. CEFOPERAZONE SODIUM [Suspect]
     Dosage: 0.5 MG, 2X/DAY
     Route: 041
     Dates: start: 20100705, end: 20100705
  3. RIBAVARIN [Suspect]
     Indication: INFECTION
     Dosage: 90 MG, UNK
     Route: 041
     Dates: start: 20100701, end: 20100706
  4. TAZOBACTAM [Suspect]
     Dosage: 0.5 MG, 2X/DAY
     Route: 041
     Dates: start: 20100705, end: 20100705

REACTIONS (1)
  - HYPERSENSITIVITY [None]
